FAERS Safety Report 11993837 (Version 1)
Quarter: 2016Q1

REPORT INFORMATION
  Report Type: Spontaneous
  Country: US (occurrence: US)
  Receive Date: 20160203
  Receipt Date: 20160203
  Transmission Date: 20160526
  Serious: Yes (Death)
  Sender: FDA-Public Use
  Company Number: US-ABBVIE-16P-163-1551169-00

PATIENT
  Sex: Male

DRUGS (1)
  1. ANDROGEL [Suspect]
     Active Substance: TESTOSTERONE
     Indication: ANDROGEN REPLACEMENT THERAPY
     Route: 061
     Dates: start: 200809, end: 200904

REACTIONS (2)
  - Arrhythmia [Fatal]
  - Myocardial infarction [Fatal]

NARRATIVE: CASE EVENT DATE: 20090421
